FAERS Safety Report 5636648-6 (Version None)
Quarter: 2008Q1

REPORT INFORMATION
  Report Type: 
  Country: None (occurrence: None)
  Receive Date: 20080219
  Receipt Date: 20080219
  Transmission Date: 20080703
  Serious: Yes (Hospitalization)
  Sender: FDA-Public Use
  Company Number: None

PATIENT
  Age: 58 Year
  Sex: Male

DRUGS (2)
  1. FENTANYL [Suspect]
     Indication: PAIN
     Dosage: 100MCG PER HOUR TOP
     Route: 061
     Dates: start: 20070118, end: 20070718
  2. ACETAMINOPHEN AND HYDROCODONE BITARTRATE [Suspect]
     Indication: ANXIETY
     Dosage: 5MG TID PO
     Route: 048

REACTIONS (2)
  - AFFECTIVE DISORDER [None]
  - FALL [None]
